FAERS Safety Report 10071509 (Version 2)
Quarter: 2014Q2

REPORT INFORMATION
  Report Type: Spontaneous
  Country: US (occurrence: US)
  Receive Date: 20140410
  Receipt Date: 20140516
  Transmission Date: 20141212
  Serious: Yes (Death)
  Sender: FDA-Public Use
  Company Number: US-TEVA-474029USA

PATIENT
  Age: 53 Year
  Sex: Female

DRUGS (7)
  1. FENTORA [Suspect]
     Indication: BACK PAIN
     Route: 002
     Dates: end: 201302
  2. PHENERGAN [Concomitant]
     Dosage: 25 MILLIGRAM DAILY;
     Route: 048
  3. SOMA [Concomitant]
     Dosage: 1400 MILLIGRAM DAILY;
     Route: 048
  4. RESTORIL [Concomitant]
     Dosage: 30 MILLIGRAM DAILY;
     Route: 048
  5. FIORINAL [Concomitant]
     Dosage: 4-6 HOURS
     Route: 048
  6. AVINZA [Concomitant]
  7. XANAX [Concomitant]
     Dosage: 4 MILLIGRAM DAILY;
     Route: 048

REACTIONS (2)
  - Death [Fatal]
  - Mass [Unknown]
